FAERS Safety Report 7556070-5 (Version None)
Quarter: 2011Q2

REPORT INFORMATION
  Report Type: 
  Country: None (occurrence: None)
  Receive Date: 20110620
  Receipt Date: 20110607
  Transmission Date: 20111010
  Serious: No
  Sender: FDA-Public Use
  Company Number: US-BIOGENIDEC-2011BI006018

PATIENT
  Age: 41 Year
  Sex: Female

DRUGS (5)
  1. TYSABRI [Suspect]
     Indication: MULTIPLE SCLEROSIS
     Route: 042
     Dates: start: 20090513
  2. STEROIDS [Concomitant]
     Indication: PREMEDICATION
     Route: 042
     Dates: start: 20110301
  3. AVONEX [Concomitant]
     Indication: MULTIPLE SCLEROSIS
     Route: 030
     Dates: start: 20050128
  4. BENADRYL [Concomitant]
     Indication: PREMEDICATION
     Dates: start: 20110301
  5. PEPCID [Concomitant]
     Indication: PREMEDICATION
     Dates: start: 20110301

REACTIONS (3)
  - HYPERSENSITIVITY [None]
  - NASOPHARYNGITIS [None]
  - INFLUENZA [None]
